FAERS Safety Report 22697462 (Version 4)
Quarter: 2024Q1

REPORT INFORMATION
  Report Type: Report from Study
  Country: IT (occurrence: IT)
  Receive Date: 20230712
  Receipt Date: 20240304
  Transmission Date: 20240410
  Serious: Yes (Hospitalization, Other)
  Sender: FDA-Public Use
  Company Number: IT-002147023-NVSC2020IT313893

PATIENT

DRUGS (11)
  1. RUXOLITINIB [Suspect]
     Active Substance: RUXOLITINIB
     Indication: Myelofibrosis
     Dosage: 40 TOTAL
     Route: 065
     Dates: start: 20201009, end: 20201022
  2. RUXOLITINIB [Suspect]
     Active Substance: RUXOLITINIB
     Dosage: 20 TOTAL
     Route: 065
     Dates: start: 20201023, end: 20201030
  3. RUXOLITINIB [Suspect]
     Active Substance: RUXOLITINIB
     Dosage: 10 TOTAL
     Route: 065
     Dates: start: 20201031, end: 20201109
  4. RUXOLITINIB [Suspect]
     Active Substance: RUXOLITINIB
     Dosage: 15 TOTAL
     Route: 065
     Dates: start: 20201110, end: 20201223
  5. RUXOLITINIB [Suspect]
     Active Substance: RUXOLITINIB
     Dosage: UNK (LINE NUMBER:4 - TOTAL DAILY DOSE:15)
     Route: 065
     Dates: start: 20201110, end: 20210302
  6. RUXOLITINIB [Suspect]
     Active Substance: RUXOLITINIB
     Dosage: 20 TOTAL
     Route: 065
     Dates: start: 20201223, end: 20210111
  7. RUXOLITINIB [Suspect]
     Active Substance: RUXOLITINIB
     Dosage: 10 TOTAL
     Route: 065
     Dates: start: 20210112, end: 20210209
  8. RUXOLITINIB [Suspect]
     Active Substance: RUXOLITINIB
     Dosage: 15 TOTAL
     Route: 065
     Dates: start: 20210210, end: 20210302
  9. RUXOLITINIB [Suspect]
     Active Substance: RUXOLITINIB
     Dosage: 25 TOTAL
     Route: 065
     Dates: start: 20210303, end: 20230621
  10. RUXOLITINIB [Suspect]
     Active Substance: RUXOLITINIB
     Dosage: UNK (LINE NUMBER:8 - TOTAL DAILY DOSE:25)
     Route: 065
     Dates: start: 20210303, end: 20230621
  11. RUXOLITINIB [Suspect]
     Active Substance: RUXOLITINIB
     Dosage: UNK  (LINE NUMBER:9 - TOTAL DAILY DOSE:0)
     Route: 065
     Dates: start: 20230622

REACTIONS (8)
  - Anaemia [Recovered/Resolved]
  - Anaemia [Unknown]
  - Dysuria [Unknown]
  - Escherichia sepsis [Recovered/Resolved]
  - Haemorrhoids [Unknown]
  - Hyperferritinaemia [Unknown]
  - Thrombocytopenia [Recovered/Resolved]
  - Thrombocytopenia [Unknown]

NARRATIVE: CASE EVENT DATE: 20201021
